FAERS Safety Report 9467682 (Version 1)
Quarter: 2013Q3

REPORT INFORMATION
  Report Type: Spontaneous
  Country: US (occurrence: None)
  Receive Date: 20130819
  Receipt Date: 20130819
  Transmission Date: 20140515
  Serious: Yes (Other)
  Sender: FDA-Public Use
  Company Number: None

PATIENT
  Age: 53 Year
  Sex: Female
  Weight: 68.04 kg

DRUGS (1)
  1. SALICYLIC ACID [Suspect]
     Indication: ACNE
     Dosage: DIME-SIZE DROP  TWICE DAILY  APPLIED TO A SURFACE, USUALLY THE SKIN.
     Route: 061
     Dates: start: 20130815

REACTIONS (8)
  - Blister [None]
  - Rash macular [None]
  - Swelling face [None]
  - Pyrexia [None]
  - Dysphonia [None]
  - Drug hypersensitivity [None]
  - Fatigue [None]
  - Somnolence [None]
